FAERS Safety Report 14838998 (Version 1)
Quarter: 2018Q2

REPORT INFORMATION
  Report Type: Spontaneous
  Country: US (occurrence: US)
  Receive Date: 20180502
  Receipt Date: 20180502
  Transmission Date: 20180711
  Serious: No
  Sender: FDA-Public Use
  Company Number: US-TAIHO ONCOLOGY INC-EU-2018-00554

PATIENT
  Age: 77 Year
  Sex: Male
  Weight: 52.66 kg

DRUGS (9)
  1. FLOMAX [Concomitant]
     Active Substance: TAMSULOSIN HYDROCHLORIDE
     Dosage: NI
  2. LISINOPRIL. [Concomitant]
     Active Substance: LISINOPRIL
     Dosage: NI
  3. PRILOSEC [Concomitant]
     Active Substance: OMEPRAZOLE MAGNESIUM
     Dosage: NI
  4. FINASTERIDE. [Concomitant]
     Active Substance: FINASTERIDE
     Dosage: NI
  5. CLARITIN [Concomitant]
     Active Substance: LORATADINE
     Dosage: NI
  6. LASIX [Concomitant]
     Active Substance: FUROSEMIDE
     Dosage: NI
  7. LONSURF [Suspect]
     Active Substance: TIPIRACIL HYDROCHLORIDE\TRIFLURIDINE
     Indication: COLON CANCER
     Dosage: CYCLE 2 STARTED ON 15/NOV/2017
     Route: 048
     Dates: end: 20180418
  8. KEPPRA [Concomitant]
     Active Substance: LEVETIRACETAM
     Dosage: NI
  9. LEVOTHYROXINE. [Concomitant]
     Active Substance: LEVOTHYROXINE
     Dosage: NI

REACTIONS (1)
  - Disease progression [Unknown]

NARRATIVE: CASE EVENT DATE: 20180419
